FAERS Safety Report 5378610-7 (Version None)
Quarter: 2007Q3

REPORT INFORMATION
  Report Type: 
  Country: None (occurrence: None)
  Receive Date: 20070705
  Receipt Date: 20070622
  Transmission Date: 20080115
  Serious: Yes (Other)
  Sender: FDA-Public Use
  Company Number: CA-ROCHE-467973

PATIENT
  Age: 44 Year
  Sex: Male

DRUGS (4)
  1. PEGASYS [Suspect]
     Route: 065
  2. RIBAVIRIN [Suspect]
     Route: 065
  3. CANNABIS [Suspect]
     Route: 065
     Dates: start: 19860101
  4. TOBACCO [Suspect]
     Route: 065
     Dates: start: 19810101

REACTIONS (8)
  - ABDOMINAL PAIN [None]
  - COLITIS ISCHAEMIC [None]
  - DIARRHOEA HAEMORRHAGIC [None]
  - GASTROINTESTINAL HAEMORRHAGE [None]
  - HAEMORRHOIDS [None]
  - LEUKOPENIA [None]
  - NORMOCHROMIC NORMOCYTIC ANAEMIA [None]
  - THROMBOCYTOPENIA [None]
